FAERS Safety Report 4478763-9 (Version None)
Quarter: 2004Q4

REPORT INFORMATION
  Report Type: 
  Country: None (occurrence: None)
  Receive Date: 20041019
  Receipt Date: 20041012
  Transmission Date: 20050328
  Serious: Yes (Hospitalization)
  Sender: FDA-Public Use
  Company Number: AT-ROCHE-383020

PATIENT
  Age: 49 Year
  Sex: Male
  Weight: 77 kg

DRUGS (6)
  1. PEG-INTERFERON ALFA 2A (RO 25-8310) [Suspect]
     Indication: HEPATITIS C
     Route: 058
     Dates: start: 20040629, end: 20040921
  2. RIBAVIRIN [Suspect]
     Indication: HEPATITIS C
     Route: 048
     Dates: start: 20040629, end: 20040920
  3. RIBAVIRIN [Suspect]
     Route: 048
     Dates: start: 20040921, end: 20040929
  4. SEROPRAM [Concomitant]
     Dates: start: 20040315
  5. NERISONE [Concomitant]
     Dates: start: 20040824, end: 20041001
  6. AERIUS [Concomitant]
     Dates: start: 20040824, end: 20041001

REACTIONS (2)
  - DIARRHOEA [None]
  - PANCYTOPENIA [None]
